FAERS Safety Report 17480992 (Version 1)
Quarter: 2020Q1

REPORT INFORMATION
  Report Type: Spontaneous
  Country: GB (occurrence: GB)
  Receive Date: 20200302
  Receipt Date: 20200302
  Transmission Date: 20200409
  Serious: Yes (Life-Threatening, Hospitalization, Disabling)
  Sender: FDA-Public Use
  Company Number: GB-ROCHE-2557151

PATIENT
  Age: 45 Year
  Sex: Female

DRUGS (1)
  1. OCRELIZUMAB. [Suspect]
     Active Substance: OCRELIZUMAB
     Indication: MULTIPLE SCLEROSIS
     Route: 065
     Dates: start: 20190807

REACTIONS (1)
  - Necrotising fasciitis [Recovered/Resolved with Sequelae]

NARRATIVE: CASE EVENT DATE: 20190828
